FAERS Safety Report 10570710 (Version 3)
Quarter: 2014Q4

REPORT INFORMATION
  Report Type: Report from Study
  Country: US (occurrence: US)
  Receive Date: 20141107
  Receipt Date: 20141210
  Transmission Date: 20150529
  Serious: Yes (Death)
  Sender: FDA-Public Use
  Company Number: US-ROCHE-1446313

PATIENT
  Sex: Female

DRUGS (3)
  1. LEVOTHYROXINE [Concomitant]
     Active Substance: LEVOTHYROXINE
  2. XELODA [Suspect]
     Active Substance: CAPECITABINE
     Dosage: 14 DAYS ON; 7 DAYS OFF
     Route: 065
  3. XELODA [Suspect]
     Active Substance: CAPECITABINE
     Indication: BREAST CANCER
     Dosage: 2 TABS
     Route: 065

REACTIONS (6)
  - Breast cancer metastatic [Fatal]
  - Anaemia [Not Recovered/Not Resolved]
  - Fatigue [Not Recovered/Not Resolved]
  - Pain [Not Recovered/Not Resolved]
  - Dry skin [Not Recovered/Not Resolved]
  - Malaise [Not Recovered/Not Resolved]
